FAERS Safety Report 4582024-7 (Version None)
Quarter: 2005Q1

REPORT INFORMATION
  Report Type: 
  Country: None (occurrence: None)
  Receive Date: 20050119
  Receipt Date: 20040709
  Transmission Date: 20050727
  Serious: Yes (Other)
  Sender: FDA-Public Use
  Company Number: A03200402257

PATIENT
  Age: 73 Year
  Sex: Male
  Weight: 61.2356 kg

DRUGS (9)
  1. PLAVIX [Suspect]
     Indication: TRANSIENT ISCHAEMIC ATTACK
     Dosage: 75 MG QD - ORAL
     Route: 048
     Dates: start: 20010101, end: 20010701
  2. PLAVIX [Suspect]
     Indication: TRANSIENT ISCHAEMIC ATTACK
     Dosage: 75 MG QD - ORAL
     Route: 048
     Dates: start: 20040308
  3. LISINOPRIL [Concomitant]
  4. TAMSULOSIN HYDROCHLORIDE [Concomitant]
  5. PENNTOSAN POLYSULFATE SODIUM [Concomitant]
  6. METHIONINE [Concomitant]
  7. LOTEPREDNOL ETABONATE [Concomitant]
  8. TIMOLOL MALEATE [Concomitant]
  9. LATONOPROST [Concomitant]

REACTIONS (2)
  - TRAUMATIC HAEMORRHAGE [None]
  - WOUND HAEMORRHAGE [None]
